FAERS Safety Report 6821108-7 (Version None)
Quarter: 2010Q3

REPORT INFORMATION
  Report Type: 
  Country: None (occurrence: None)
  Receive Date: 20100707
  Receipt Date: 20080305
  Transmission Date: 20110219
  Serious: No
  Sender: FDA-Public Use
  Company Number: US-PFIZER INC-2008020752

PATIENT
  Age: 66 Year
  Sex: Female
  Weight: 63.5 kg

DRUGS (6)
  1. ZOLOFT [Suspect]
     Indication: ANXIETY
  2. ZOLOFT [Suspect]
     Indication: PERSONALITY DISORDER
  3. HERBAL NOS/VITAMINS NOS [Concomitant]
     Indication: ALOPECIA
  4. FOSAMAX [Concomitant]
     Indication: OSTEOPOROSIS
  5. CENTRUM SILVER [Concomitant]
  6. CALCIUM CARBONATE [Concomitant]

REACTIONS (1)
  - ALOPECIA [None]
